FAERS Safety Report 16555791 (Version 1)
Quarter: 2019Q3

REPORT INFORMATION
  Report Type: Report from Study
  Country: US (occurrence: US)
  Receive Date: 20190710
  Receipt Date: 20190710
  Transmission Date: 20191004
  Serious: Yes (Hospitalization, Other)
  Sender: FDA-Public Use
  Company Number: US-JNJFOC-20190208405

PATIENT
  Sex: Male

DRUGS (1)
  1. ABIRATERONE ACETATE. [Suspect]
     Active Substance: ABIRATERONE ACETATE
     Indication: PROSTATE CANCER METASTATIC
     Route: 048

REACTIONS (8)
  - Adverse drug reaction [Unknown]
  - Atrial fibrillation [Unknown]
  - Arrhythmia [Unknown]
  - Diabetes mellitus [Unknown]
  - Fluid retention [Unknown]
  - Hypertension [Unknown]
  - Cardiac failure congestive [Unknown]
  - Obesity [Unknown]
